FAERS Safety Report 7679445-2 (Version None)
Quarter: 2011Q3

REPORT INFORMATION
  Report Type: 
  Country: None (occurrence: None)
  Receive Date: 20110812
  Receipt Date: 20110809
  Transmission Date: 20111222
  Serious: Yes (Life-Threatening, Hospitalization)
  Sender: FDA-Public Use
  Company Number: NZ-B.I. PHARMACEUTICALS,INC./RIDGEFIELD-2011-AU-00733AU

PATIENT

DRUGS (1)
  1. PRADAXA [Suspect]

REACTIONS (3)
  - HAEMORRHAGE INTRACRANIAL [None]
  - FALL [None]
  - HEAD INJURY [None]
